FAERS Safety Report 4620878-6 (Version None)
Quarter: 2005Q1

REPORT INFORMATION
  Report Type: 
  Country: None (occurrence: None)
  Receive Date: 20050325
  Receipt Date: 20050311
  Transmission Date: 20050727
  Serious: Yes (Death)
  Sender: FDA-Public Use
  Company Number: DSA_70584_2005

PATIENT
  Age: 88 Year
  Sex: Male

DRUGS (1)
  1. ROXANOL [Suspect]
     Indication: PAIN
     Dosage: 20 MG PRN; PO
     Route: 048
     Dates: start: 20050115

REACTIONS (9)
  - GRIMACING [None]
  - HEART RATE DECREASED [None]
  - HEART RATE INCREASED [None]
  - NAIL DISCOLOURATION [None]
  - OXYGEN SATURATION DECREASED [None]
  - PAIN [None]
  - RESPIRATORY ARREST [None]
  - RESPIRATORY RATE DECREASED [None]
  - RESPIRATORY RATE INCREASED [None]
